FAERS Safety Report 6519259-X (Version None)
Quarter: 2009Q4

REPORT INFORMATION
  Report Type: 
  Country: None (occurrence: None)
  Receive Date: 20091228
  Receipt Date: 20091217
  Transmission Date: 20100525
  Serious: Yes (Hospitalization, Other)
  Sender: FDA-Public Use
  Company Number: CL-JNJFOC-20091200711

PATIENT
  Sex: Female
  Weight: 60 kg

DRUGS (7)
  1. REMICADE [Suspect]
     Dosage: 3RD INFUSION
     Route: 042
  2. REMICADE [Suspect]
     Indication: ANKYLOSING SPONDYLITIS
     Route: 042
  3. CISAPRIDE [Concomitant]
     Indication: GASTROINTESTINAL MOTILITY DISORDER
  4. TRAMADOL HCL [Concomitant]
  5. SODIUM PHOSPHATES [Concomitant]
     Indication: CONSTIPATION
  6. ENEMAS [Concomitant]
     Indication: CONSTIPATION
  7. PHOSPHO-SODA [Concomitant]

REACTIONS (3)
  - GASTROINTESTINAL HYPOMOTILITY [None]
  - HYPOTENSION [None]
  - KLEBSIELLA INFECTION [None]
